FAERS Safety Report 5601566-6 (Version None)
Quarter: 2008Q1

REPORT INFORMATION
  Report Type: 
  Country: None (occurrence: None)
  Receive Date: 20080124
  Receipt Date: 20080118
  Transmission Date: 20080703
  Serious: Yes (Hospitalization)
  Sender: FDA-Public Use
  Company Number: CH-JNJFOC-20080104445

PATIENT
  Age: 22 Year
  Sex: Female

DRUGS (6)
  1. HALDOL [Suspect]
     Indication: DRUG USE FOR UNKNOWN INDICATION
     Route: 048
  2. RISPERDAL [Concomitant]
     Route: 048
  3. VALIUM [Concomitant]
     Route: 048
  4. VALIUM [Concomitant]
     Route: 048
  5. ZYPREXA [Concomitant]
     Route: 048
  6. ZYPREXA [Concomitant]
     Route: 048

REACTIONS (1)
  - OCULOGYRIC CRISIS [None]
